FAERS Safety Report 5021675-2 (Version None)
Quarter: 2006Q2

REPORT INFORMATION
  Report Type: 
  Country: None (occurrence: None)
  Receive Date: 20060601
  Receipt Date: 20060311
  Transmission Date: 20061013
  Serious: No
  Sender: FDA-Public Use
  Company Number: 2006PV010068

PATIENT
  Age: 77 Year
  Sex: Female
  Weight: 81.6475 kg

DRUGS (3)
  1. BYETTA [Suspect]
     Indication: DIABETES MELLITUS NON-INSULIN-DEPENDENT
     Dosage: 5 MCG;BD;SC
     Route: 058
     Dates: start: 20060302
  2. AMARYL [Concomitant]
  3. NOVOLIN 70/30 [Concomitant]

REACTIONS (6)
  - BLOOD GLUCOSE INCREASED [None]
  - EARLY SATIETY [None]
  - FEELING JITTERY [None]
  - NAUSEA [None]
  - VISION BLURRED [None]
  - WEIGHT DECREASED [None]
